FAERS Safety Report 8003070-7 (Version None)
Quarter: 2011Q4

REPORT INFORMATION
  Report Type: 
  Country: None (occurrence: None)
  Receive Date: 20111222
  Receipt Date: 20111216
  Transmission Date: 20120403
  Serious: Yes (Hospitalization, Other)
  Sender: FDA-Public Use
  Company Number: US-ABBOTT-11P-163-0884261-00

PATIENT
  Sex: Female
  Weight: 70.37 kg

DRUGS (4)
  1. WARFARIN SODIUM [Concomitant]
     Indication: ANTICOAGULANT THERAPY
  2. SIMVASTATIN [Concomitant]
     Indication: BLOOD CHOLESTEROL INCREASED
  3. ZEGERID [Concomitant]
     Indication: GASTRIC DISORDER
  4. HUMIRA [Suspect]
     Indication: CROHN'S DISEASE
     Route: 058
     Dates: start: 20110501, end: 20110801

REACTIONS (8)
  - LIVER ABSCESS [None]
  - INTESTINAL FISTULA [None]
  - ABDOMINAL PAIN [None]
  - INFECTION [None]
  - ABDOMINAL ADHESIONS [None]
  - BLOOD MAGNESIUM DECREASED [None]
  - SMALL INTESTINAL STENOSIS [None]
  - DEHYDRATION [None]
